FAERS Safety Report 5756746-6 (Version None)
Quarter: 2008Q2

REPORT INFORMATION
  Report Type: 
  Country: None (occurrence: None)
  Receive Date: 20080603
  Receipt Date: 20080521
  Transmission Date: 20081010
  Serious: Yes (Hospitalization)
  Sender: FDA-Public Use
  Company Number: JP-AMGEN-US283171

PATIENT
  Age: 67 Year
  Sex: Female

DRUGS (8)
  1. ENBREL [Suspect]
     Indication: RHEUMATOID ARTHRITIS
     Route: 058
     Dates: start: 20071113, end: 20080415
  2. PREDONINE [Concomitant]
     Dosage: UNKNOWN
     Route: 048
  3. FOLIC ACID [Concomitant]
     Dosage: UNKNOWN
     Route: 048
  4. LIVALO [Concomitant]
     Dosage: UNKNOWN
     Route: 048
  5. SEPAMIT [Concomitant]
     Dosage: UNKNOWN
     Route: 048
  6. AMARYL [Concomitant]
     Dosage: UNKNOWN
     Route: 048
  7. RHEUMATREX [Concomitant]
     Dosage: UNKNOWN
     Route: 048
  8. LOXONIN [Concomitant]
     Dosage: UNKNOWN
     Route: 048

REACTIONS (1)
  - HISTIOCYTOSIS HAEMATOPHAGIC [None]
